FAERS Safety Report 7109827-9 (Version None)
Quarter: 2010Q4

REPORT INFORMATION
  Report Type: 
  Country: None (occurrence: None)
  Receive Date: 20101118
  Receipt Date: 20101109
  Transmission Date: 20110411
  Serious: Yes (Other)
  Sender: FDA-Public Use
  Company Number: PHHY2010JP64919

PATIENT
  Age: 10 Year
  Sex: Male

DRUGS (6)
  1. SIMULECT [Suspect]
     Indication: RENAL TRANSPLANT
     Dosage: 10 MG, ONCE/SINGLE
     Route: 042
     Dates: start: 20100430, end: 20100430
  2. SIMULECT [Suspect]
     Dosage: 10 MG, ONCE/SINGLE
     Route: 042
     Dates: start: 20100504, end: 20100504
  3. METHYLPREDNISOLONE [Concomitant]
     Dosage: UNK
     Route: 048
  4. TACROLIMUS [Concomitant]
     Dosage: UNK
     Route: 048
  5. MYCOPHENOLATE MOFETIL [Concomitant]
     Dosage: UNK
     Route: 048
  6. RITUXIMAB [Concomitant]
     Dosage: 100 MG

REACTIONS (7)
  - BRAIN OEDEMA [None]
  - CONVULSION [None]
  - HYPONATRAEMIA [None]
  - INAPPROPRIATE ANTIDIURETIC HORMONE SECRETION [None]
  - MECHANICAL VENTILATION [None]
  - RENAL TUBULAR DISORDER [None]
  - SEDATION [None]
